FAERS Safety Report 4626958-3 (Version None)
Quarter: 2005Q1

REPORT INFORMATION
  Report Type: 
  Country: None (occurrence: None)
  Receive Date: 20050331
  Receipt Date: 20050315
  Transmission Date: 20050727
  Serious: Yes (Disabling)
  Sender: FDA-Public Use
  Company Number: DSA_25898_2005

PATIENT
  Age: 78 Year
  Sex: Female

DRUGS (1)
  1. ENALAPRIL MALEATE [Suspect]
     Dosage: 5 MG ONE PO
     Route: 048
     Dates: start: 19990108, end: 19990109

REACTIONS (1)
  - BLINDNESS [None]
